FAERS Safety Report 10055987 (Version 1)
Quarter: 2014Q2

REPORT INFORMATION
  Report Type: Spontaneous
  Country: FR (occurrence: None)
  Receive Date: 20140401
  Receipt Date: 20140401
  Transmission Date: 20141212
  Serious: Yes (Hospitalization)
  Sender: FDA-Public Use
  Company Number: B0978504A

PATIENT
  Age: 86 Year
  Sex: Male

DRUGS (8)
  1. PAROXETINE HYDROCHLORIDE [Suspect]
     Indication: PRODUCT USED FOR UNKNOWN INDICATION
     Route: 048
  2. FLUINDIONE [Suspect]
     Indication: PRODUCT USED FOR UNKNOWN INDICATION
     Route: 048
  3. CANDESARTAN CILEXETIL [Concomitant]
  4. POTASSIUM CHLORIDE [Concomitant]
  5. SAW PALMETTO [Concomitant]
  6. NEBIVOLOL HCL [Concomitant]
  7. NICARDIPINE HYDROCHLORIDE [Concomitant]
  8. TIAPRIDE [Concomitant]

REACTIONS (2)
  - Cerebral haematoma [None]
  - Drug interaction [None]
